FAERS Safety Report 17902362 (Version 2)
Quarter: 2022Q4

REPORT INFORMATION
  Report Type: Spontaneous
  Country: DE (occurrence: DE)
  Receive Date: 20200617
  Receipt Date: 20221027
  Transmission Date: 20230113
  Serious: Yes (Death, Life-Threatening, Hospitalization, Other)
  Sender: FDA-Public Use
  Company Number: DE-ADRED-00070-03

PATIENT
  Age: 82 Year
  Sex: Female

DRUGS (10)
  1. COTRIM [Suspect]
     Active Substance: SULFAMETHOXAZOLE\TRIMETHOPRIM
     Indication: Product used for unknown indication
     Dosage: 1X
  2. XARELTO [Concomitant]
     Active Substance: RIVAROXABAN
     Indication: Product used for unknown indication
     Dosage: 15 MILLIGRAM DAILY; 1-0-0-0
  3. Nifedipin AL 10 [Concomitant]
     Indication: Product used for unknown indication
     Dosage: 10 MG, NEED,
  4. TORSEMIDE [Concomitant]
     Active Substance: TORSEMIDE
     Indication: Product used for unknown indication
     Dosage: 5 MILLIGRAM DAILY; 10 MG, 0.5-0-0-0
  5. Calcium AL 500 [Concomitant]
     Indication: Product used for unknown indication
     Dosage: 500 MILLIGRAM DAILY; 1-0-0-0
  6. METAMIZOL HEUMANN [Concomitant]
     Indication: Product used for unknown indication
     Dosage: 500 MG, NEED
  7. MACROGOL ABZ [Concomitant]
     Indication: Product used for unknown indication
     Dosage: 1 DOSAGE FORMS DAILY; 1-0-0-0
  8. Propra-ratiopharm [Concomitant]
     Indication: Product used for unknown indication
     Dosage: 80 MG, 1-1-1-0 ,UNIT DOSE :240 MILLIGRAM
  9. CANDESARTAN CILEXETIL [Concomitant]
     Active Substance: CANDESARTAN CILEXETIL
     Indication: Product used for unknown indication
     Dosage: 32 MILLIGRAM DAILY; 1-0-1-0
  10. PANTOPRAZOL HENNIG [Concomitant]
     Indication: Product used for unknown indication
     Dosage: 40 MILLIGRAM DAILY; 1-0-0-0

REACTIONS (3)
  - Product prescribing error [Unknown]
  - Cardiac arrest [Fatal]
  - Anaphylactic shock [Unknown]

NARRATIVE: CASE EVENT DATE: 20190916
